FAERS Safety Report 5739873-9 (Version None)
Quarter: 2008Q2

REPORT INFORMATION
  Report Type: 
  Country: None (occurrence: None)
  Receive Date: 20080516
  Receipt Date: 20080505
  Transmission Date: 20081010
  Serious: Yes (Other)
  Sender: FDA-Public Use
  Company Number: US-JNJFOC-20080501367

PATIENT
  Sex: Female
  Weight: 85.28 kg

DRUGS (16)
  1. DURAGESIC-100 [Suspect]
     Route: 062
  2. DURAGESIC-100 [Suspect]
     Indication: BACK PAIN
     Route: 062
  3. FENTANYL TRANSDERMAL SYSTEM [Suspect]
     Indication: BACK PAIN
     Route: 062
  4. EPIDURAL [Suspect]
     Indication: BACK PAIN
     Route: 008
  5. ASPIRIN [Concomitant]
     Indication: CARDIOVASCULAR EVENT PROPHYLAXIS
     Route: 048
  6. SYNTHROID [Concomitant]
     Indication: THYROID DISORDER
     Route: 048
  7. VICODIN [Concomitant]
     Indication: BREAKTHROUGH PAIN
     Dosage: 5/500 MG AS NEEDED
     Route: 048
  8. AMITRIPTYLINE HCL [Concomitant]
     Route: 048
  9. CLONAZEPAM [Concomitant]
     Indication: ANXIETY
     Route: 048
  10. TAGAMET [Concomitant]
     Indication: GASTROOESOPHAGEAL REFLUX DISEASE
     Route: 048
  11. ESTRACE [Concomitant]
     Indication: HORMONE REPLACEMENT THERAPY
     Route: 048
  12. AMLODIPINE BESYLATE AND BENAZEPRIL HCL [Concomitant]
     Indication: BLOOD PRESSURE
     Dosage: 5/10 MG
     Route: 048
  13. LOVASTATIN [Concomitant]
     Indication: BLOOD CHOLESTEROL
     Route: 048
  14. DEMADEX [Concomitant]
     Indication: DIURETIC THERAPY
     Route: 048
  15. POTASSIUM CHLORIDE [Concomitant]
     Indication: MINERAL SUPPLEMENTATION
     Route: 048
  16. LABETALOL HCL [Concomitant]
     Indication: BLOOD PRESSURE
     Route: 048

REACTIONS (18)
  - APPLICATION SITE DISCOLOURATION [None]
  - APPLICATION SITE IRRITATION [None]
  - APPLICATION SITE VESICLES [None]
  - ARTHRITIS [None]
  - BACK PAIN [None]
  - BLOOD IRON DECREASED [None]
  - CONSTIPATION [None]
  - DEPRESSION [None]
  - DRY SKIN [None]
  - FALL [None]
  - FOOT FRACTURE [None]
  - GASTROOESOPHAGEAL REFLUX DISEASE [None]
  - HYPOAESTHESIA [None]
  - INSOMNIA [None]
  - NERVOUSNESS [None]
  - PAIN [None]
  - UNEVALUABLE EVENT [None]
  - WRONG TECHNIQUE IN DRUG USAGE PROCESS [None]
